FAERS Safety Report 6385030-5 (Version None)
Quarter: 2009Q4

REPORT INFORMATION
  Report Type: 
  Country: None (occurrence: None)
  Receive Date: 20091002
  Receipt Date: 20090924
  Transmission Date: 20100525
  Serious: Yes (Hospitalization)
  Sender: FDA-Public Use
  Company Number: CH-ASTRAZENECA-2009SE15253

PATIENT
  Age: 30 Year
  Sex: Male

DRUGS (8)
  1. SEROQUEL [Suspect]
     Route: 048
     Dates: start: 20070101, end: 20090325
  2. SEROQUEL [Suspect]
     Route: 048
     Dates: start: 20090326
  3. RITALIN [Suspect]
     Route: 048
     Dates: start: 20070101, end: 20090301
  4. RITALIN [Suspect]
     Route: 048
     Dates: start: 20090302, end: 20090304
  5. METHADON [Suspect]
     Route: 048
     Dates: start: 20090227
  6. VALIUM [Concomitant]
     Route: 048
     Dates: start: 20070101
  7. CIPRALEX [Concomitant]
     Route: 048
     Dates: start: 20080101
  8. IMOVANE [Concomitant]
     Route: 048
     Dates: start: 20050101, end: 20090406

REACTIONS (3)
  - ELECTROCARDIOGRAM QT PROLONGED [None]
  - SYNCOPE [None]
  - VENTRICULAR TACHYCARDIA [None]
